FAERS Safety Report 5452333-8 (Version None)
Quarter: 2007Q3

REPORT INFORMATION
  Report Type: 
  Country: None (occurrence: None)
  Receive Date: 20070912
  Receipt Date: 20070912
  Transmission Date: 20080115
  Serious: Yes (Life-Threatening, Hospitalization)
  Sender: FDA-Public Use
  Company Number: None

PATIENT
  Age: 16 Year
  Sex: Female
  Weight: 77 kg

DRUGS (1)
  1. RITUXIMAB [Suspect]
     Indication: ANTIPHOSPHOLIPID SYNDROME
     Dosage: 375 MG/METER SQUARED WEEKLY FOR 4 WEEKS IV BOLUS 2 INFUSIONS
     Route: 040
     Dates: start: 20070501

REACTIONS (17)
  - ACTIVATED PARTIAL THROMBOPLASTIN TIME PROLONGED [None]
  - CARDIAC FAILURE [None]
  - CARDIAC VALVE VEGETATION [None]
  - CATHETER SEPSIS [None]
  - CHOLELITHIASIS [None]
  - CHOLESTASIS [None]
  - CONDITION AGGRAVATED [None]
  - DEEP VEIN THROMBOSIS [None]
  - DISEASE RECURRENCE [None]
  - ENDOCARDITIS [None]
  - HYDRONEPHROSIS [None]
  - LIVER ABSCESS [None]
  - SEPTIC EMBOLUS [None]
  - SHOCK [None]
  - SPLENIC INFARCTION [None]
  - STAPHYLOCOCCAL SEPSIS [None]
  - UNRESPONSIVE TO STIMULI [None]
